FAERS Safety Report 8581707-1 (Version None)
Quarter: 2012Q3

REPORT INFORMATION
  Report Type: 
  Country: None (occurrence: None)
  Receive Date: 20120727
  Receipt Date: 20120712
  Transmission Date: 20120928
  Serious: Yes (Other)
  Sender: FDA-Public Use
  Company Number: FK201202023

PATIENT
  Age: 80 Year
  Sex: Female

DRUGS (1)
  1. LETROZOLE [Suspect]
     Indication: BREAST CANCER

REACTIONS (4)
  - COLON ADENOMA [None]
  - WEIGHT DECREASED [None]
  - EOSINOPHILIC COLITIS [None]
  - HIATUS HERNIA [None]
